FAERS Safety Report 7798381-4 (Version None)
Quarter: 2011Q4

REPORT INFORMATION
  Report Type: 
  Country: None (occurrence: None)
  Receive Date: 20111005
  Receipt Date: 20110928
  Transmission Date: 20120403
  Serious: Yes (Disabling, Other)
  Sender: FDA-Public Use
  Company Number: AU-PFIZER INC-2011211461

PATIENT
  Age: 46 Year
  Sex: Female
  Weight: 70 kg

DRUGS (2)
  1. EFFEXOR XR [Suspect]
     Indication: DEPRESSION
     Dosage: 150 MG, 1X/DAY
     Route: 048
     Dates: start: 20090101
  2. YASMIN [Concomitant]
     Indication: ORAL CONTRACEPTION
     Dosage: UNK, 1X/DAILY
     Route: 048

REACTIONS (12)
  - NAUSEA [None]
  - DEPRESSED MOOD [None]
  - HEADACHE [None]
  - DRUG DOSE OMISSION [None]
  - MALAISE [None]
  - VOMITING [None]
  - DIZZINESS [None]
  - SUICIDAL BEHAVIOUR [None]
  - CRYING [None]
  - FEELING ABNORMAL [None]
  - DEPRESSION [None]
  - ANXIETY [None]
